FAERS Safety Report 4527444-1 (Version None)
Quarter: 2004Q4

REPORT INFORMATION
  Report Type: 
  Country: None (occurrence: None)
  Receive Date: 20041215
  Receipt Date: 20041208
  Transmission Date: 20050328
  Serious: Yes (Hospitalization)
  Sender: FDA-Public Use
  Company Number: 200414619FR

PATIENT
  Age: 57 Year
  Sex: Female
  Weight: 47 kg

DRUGS (6)
  1. CLAFORAN [Suspect]
     Dates: start: 20040508, end: 20040511
  2. AMIKLIN [Suspect]
     Dates: start: 20040508, end: 20040510
  3. AUGMENTIN '125' [Suspect]
     Dosage: DOSE: 2-2-2
     Route: 042
     Dates: start: 20040515, end: 20040523
  4. ALL OTHER THERAPEUTIC PRODUCTS [Concomitant]
     Indication: SEPTIC SHOCK
     Dates: start: 20040501
  5. XIGRIS [Concomitant]
     Indication: SEPTIC SHOCK
     Dates: start: 20040501
  6. IMODIUM [Concomitant]
     Indication: DIARRHOEA
     Dates: start: 20040522

REACTIONS (13)
  - BLOOD CULTURE POSITIVE [None]
  - CLOSTRIDIUM COLITIS [None]
  - CULTURE URINE POSITIVE [None]
  - DIARRHOEA [None]
  - DRUG INEFFECTIVE [None]
  - ESCHERICHIA INFECTION [None]
  - HAEMODYNAMIC INSTABILITY [None]
  - KLEBSIELLA INFECTION [None]
  - MULTIPLE-DRUG RESISTANCE [None]
  - PROTEUS INFECTION [None]
  - PSEUDOMONAS INFECTION [None]
  - PYREXIA [None]
  - URINARY TRACT INFECTION ENTEROCOCCAL [None]
